FAERS Safety Report 5138706-1 (Version None)
Quarter: 2006Q4

REPORT INFORMATION
  Report Type: 
  Country: None (occurrence: None)
  Receive Date: 20061024
  Receipt Date: 20061013
  Transmission Date: 20070319
  Serious: Yes (Death)
  Sender: FDA-Public Use
  Company Number: 20060212

PATIENT
  Sex: Male

DRUGS (1)
  1. ACETYLCYSTEINE SOLUTION, USP (7604-25) 200 [Suspect]
     Dosage: IV
     Route: 042

REACTIONS (1)
  - INCORRECT ROUTE OF DRUG ADMINISTRATION [None]
